FAERS Safety Report 5277179-5 (Version None)
Quarter: 2007Q1

REPORT INFORMATION
  Report Type: 
  Country: None (occurrence: None)
  Receive Date: 20070327
  Receipt Date: 20070322
  Transmission Date: 20070707
  Serious: Yes (Life-Threatening, Hospitalization)
  Sender: FDA-Public Use
  Company Number: 2006AP05575

PATIENT
  Age: 23353 Day
  Sex: Female
  Weight: 59.6 kg

DRUGS (35)
  1. IRESSA [Suspect]
     Indication: NON-SMALL CELL LUNG CANCER
     Route: 048
     Dates: start: 20060816, end: 20060905
  2. IRESSA [Suspect]
     Indication: LUNG ADENOCARCINOMA
     Route: 048
     Dates: start: 20060816, end: 20060905
  3. IRESSA [Suspect]
     Route: 048
     Dates: start: 20060926, end: 20061008
  4. IRESSA [Suspect]
     Route: 048
     Dates: start: 20060926, end: 20061008
  5. IRESSA [Suspect]
     Route: 048
     Dates: start: 20061011, end: 20061025
  6. IRESSA [Suspect]
     Route: 048
     Dates: start: 20061011, end: 20061025
  7. NOVAMIN [Suspect]
     Indication: NAUSEA
     Route: 048
     Dates: start: 20060821, end: 20060905
  8. OXYCONTIN [Concomitant]
     Indication: CANCER PAIN
     Route: 048
     Dates: start: 20060731, end: 20060803
  9. OXYCONTIN [Concomitant]
     Route: 048
     Dates: start: 20060804, end: 20060821
  10. DUROTEP [Concomitant]
     Indication: CANCER PAIN
     Dates: start: 20060802, end: 20060922
  11. DUROTEP [Concomitant]
     Dates: start: 20060923, end: 20061120
  12. GASTER D [Concomitant]
     Indication: GASTRITIS PROPHYLAXIS
     Route: 048
     Dates: start: 20060811, end: 20060915
  13. BROTIZOLAN [Concomitant]
     Indication: INSOMNIA
     Route: 048
     Dates: start: 20060811, end: 20061021
  14. ACIDLESS [Concomitant]
     Indication: GASTRITIS PROPHYLAXIS
     Route: 048
     Dates: start: 20060822, end: 20060824
  15. DEXART [Concomitant]
     Indication: BRAIN OEDEMA
     Route: 041
     Dates: start: 20060822, end: 20060828
  16. DEXART [Concomitant]
     Route: 041
     Dates: start: 20060829, end: 20060904
  17. DEXART [Concomitant]
     Route: 041
     Dates: start: 20060905, end: 20060923
  18. LOPEMIN [Concomitant]
     Indication: DIARRHOEA
     Route: 048
     Dates: start: 20060901, end: 20060907
  19. BIOFERMIN [Concomitant]
     Indication: DIARRHOEA
     Route: 048
     Dates: start: 20060901, end: 20060910
  20. PHYSIO 35 [Concomitant]
     Indication: FLUID REPLACEMENT
     Route: 041
     Dates: start: 20060901, end: 20061102
  21. GLYCEOL [Concomitant]
     Indication: BRAIN OEDEMA
     Route: 041
     Dates: start: 20060912, end: 20061120
  22. VONFENAC [Concomitant]
     Indication: PAIN
     Route: 054
     Dates: start: 20060916, end: 20061010
  23. TAKEPRON [Concomitant]
     Indication: GASTRITIS
     Route: 048
     Dates: start: 20060916, end: 20061028
  24. DECADRON [Concomitant]
     Indication: BRAIN OEDEMA
     Route: 048
     Dates: start: 20060924, end: 20061003
  25. PURSENNID [Concomitant]
     Indication: CONSTIPATION
     Route: 048
     Dates: start: 20061011, end: 20061028
  26. MAGNESIUM OXIDE [Concomitant]
     Indication: CONSTIPATION
     Route: 048
     Dates: start: 20061012, end: 20061027
  27. ADONA [Concomitant]
     Indication: HAEMOPTYSIS
     Route: 041
     Dates: start: 20061021, end: 20061024
  28. TRANSAMIN [Concomitant]
     Indication: HAEMOPTYSIS
     Route: 041
     Dates: start: 20061021, end: 20061024
  29. MAINTATE [Concomitant]
     Indication: HYPERTENSION
     Route: 048
     Dates: end: 20061028
  30. MERCAZOLE [Concomitant]
     Indication: HYPERTHYROIDISM
     Route: 048
     Dates: end: 20061028
  31. NEU-UP [Concomitant]
     Indication: WHITE BLOOD CELL COUNT DECREASED
     Route: 058
     Dates: start: 20061113, end: 20061119
  32. RADIOTHERAPY [Concomitant]
     Dosage: 50 GRAYS LOWER LIMBS
     Dates: start: 20060814, end: 20060915
  33. RADIOTHERAPY [Concomitant]
     Dosage: 44 GRAYS CRANIUM
     Dates: start: 20060821, end: 20060922
  34. RADIOTHERAPY [Concomitant]
     Dosage: 38 GRAYS THORACIC VERTEBRAE
     Dates: start: 20060929, end: 20061026
  35. RADIOTHERAPY [Concomitant]
     Dosage: 20 GRAYS CEREBELLUM
     Dates: start: 20061006, end: 20061020

REACTIONS (4)
  - DIARRHOEA [None]
  - INTERSTITIAL LUNG DISEASE [None]
  - LIVER DISORDER [None]
  - NAUSEA [None]
